FAERS Safety Report 18251252 (Version 1)
Quarter: 2020Q3

REPORT INFORMATION
  Report Type: Other
  Country: US (occurrence: US)
  Receive Date: 20200910
  Receipt Date: 20200910
  Transmission Date: 20201103
  Serious: Yes (Other)
  Sender: FDA-Public Use
  Company Number: US-ROCHE-2673632

PATIENT

DRUGS (2)
  1. MYCOPHENOLATE MOFETIL. [Suspect]
     Active Substance: MYCOPHENOLATE MOFETIL
     Indication: IMMUNOSUPPRESSION
     Route: 065
  2. METHOTREXATE. [Suspect]
     Active Substance: METHOTREXATE
     Indication: IMMUNOSUPPRESSION
     Route: 065

REACTIONS (8)
  - Graft versus host disease [Unknown]
  - Encephalitis [Unknown]
  - Enteritis [Unknown]
  - Pneumonitis [Unknown]
  - Epstein-Barr virus infection reactivation [Unknown]
  - Fungal infection [Unknown]
  - Multiple organ dysfunction syndrome [Unknown]
  - Cytomegalovirus infection reactivation [Unknown]
